FAERS Safety Report 8119274 (Version 6)
Quarter: 2015Q1

REPORT INFORMATION
  Report Type: Spontaneous
  Country: JP (occurrence: JP)
  Receive Date: 20110902
  Receipt Date: 20150324
  Transmission Date: 20150721
  Serious: Yes (Death, Life-Threatening, Hospitalization)
  Sender: FDA-Public Use
  Company Number: JP-PFIZER INC-2011200067

PATIENT
  Age: 66 Year
  Sex: Female
  Weight: 46 kg

DRUGS (15)
  1. CYTOTEC [Suspect]
     Active Substance: MISOPROSTOL
     Dosage: 200 MG, 1X/DAY
     Dates: start: 20110824, end: 20110824
  2. LOXONIN [Concomitant]
     Active Substance: LOXOPROFEN SODIUM
     Indication: PAIN
  3. SENNOSIDES. [Concomitant]
     Active Substance: SENNOSIDES
     Indication: CONSTIPATION
     Dosage: 12 MG, 1X/DAY
     Route: 048
     Dates: start: 20100517, end: 20110824
  4. NOVAMIN [Suspect]
     Active Substance: PROCHLORPERAZINE MALEATE
     Indication: VOMITING
     Dosage: 5 MG, 2X/DAY
     Route: 048
     Dates: start: 20110809, end: 20110812
  5. NAIXAN [Suspect]
     Active Substance: NAPROXEN SODIUM
     Indication: PAIN
     Dosage: 100 MG, 2X/DAY
     Route: 048
     Dates: start: 20110822, end: 20110823
  6. MAGMITT [Concomitant]
     Active Substance: MAGNESIUM OXIDE
     Indication: CONSTIPATION
     Dosage: 330 MG, 3X/DAY
     Route: 048
     Dates: start: 20100510, end: 20110824
  7. MOBIC [Suspect]
     Active Substance: MELOXICAM
     Indication: PAIN
     Dosage: 10 MG, 1X/DAY
     Dates: start: 20110824, end: 20110824
  8. NOVAMIN [Suspect]
     Active Substance: PROCHLORPERAZINE MALEATE
     Dosage: 5 MG, 2X/DAY
     Dates: start: 20110815, end: 20110824
  9. SUTENT [Suspect]
     Active Substance: SUNITINIB MALATE
     Indication: RENAL CELL CARCINOMA
     Dosage: 50 MG, 1X/DAY
     Route: 048
     Dates: start: 20110808, end: 20110822
  10. LOXONIN [Concomitant]
     Active Substance: LOXOPROFEN SODIUM
     Indication: PYREXIA
     Dosage: 60 MG, 2X/DAY
     Route: 048
     Dates: start: 20100517, end: 20110824
  11. MOBIC [Suspect]
     Active Substance: MELOXICAM
     Indication: PYREXIA
     Dosage: 10 MG, 1X/DAY
     Route: 048
     Dates: start: 20110813, end: 20110821
  12. OXYCONTIN [Concomitant]
     Active Substance: OXYCODONE HYDROCHLORIDE
     Indication: CANCER PAIN
     Dosage: 5 MG, 2X/DAY
     Route: 048
     Dates: start: 20110809, end: 20110809
  13. DUROTEP MT PATCH [Suspect]
     Active Substance: FENTANYL
     Indication: CANCER PAIN
     Dosage: 1 SHEET FOR THREE DAYS
     Route: 062
     Dates: start: 20110822, end: 20110824
  14. CYTOTEC [Suspect]
     Active Substance: MISOPROSTOL
     Indication: CHRONIC GASTRITIS
     Dosage: 200 MG, 1X/DAY
     Route: 048
     Dates: start: 20110721, end: 20110821
  15. PACETCOOL [Suspect]
     Active Substance: CEFOTIAM HYDROCHLORIDE
     Indication: SEPSIS
     Dosage: 1 G, 2X/DAY
     Route: 042
     Dates: start: 20110819, end: 20110822

REACTIONS (3)
  - Toxic epidermal necrolysis [Fatal]
  - Staphylococcal sepsis [Fatal]
  - Pancytopenia [Fatal]

NARRATIVE: CASE EVENT DATE: 20110823
